FAERS Safety Report 12328719 (Version 1)
Quarter: 2016Q2

REPORT INFORMATION
  Report Type: Spontaneous
  Country: US (occurrence: US)
  Receive Date: 20160503
  Receipt Date: 20160503
  Transmission Date: 20160815
  Serious: No
  Sender: FDA-Public Use
  Company Number: US-BEH-2015050362

PATIENT
  Sex: Male
  Weight: 64 kg

DRUGS (47)
  1. TIMOLOL. [Concomitant]
     Active Substance: TIMOLOL
  2. AMITRIPTYLINE [Concomitant]
     Active Substance: AMITRIPTYLINE
  3. TRIAMCINOLONE [Concomitant]
     Active Substance: TRIAMCINOLONE
  4. FOLIC ACID. [Concomitant]
     Active Substance: FOLIC ACID
  5. PROSCAR [Concomitant]
     Active Substance: FINASTERIDE
  6. CENTRUM SILVER [Concomitant]
     Active Substance: MINERALS\VITAMINS
  7. AMMONIUM LACTATE. [Concomitant]
     Active Substance: AMMONIUM LACTATE
  8. TYLENOL EXTRA STRENGTH [Concomitant]
     Active Substance: ACETAMINOPHEN
  9. MIRALAX [Concomitant]
     Active Substance: POLYETHYLENE GLYCOL 3350
  10. NEXIUM [Concomitant]
     Active Substance: ESOMEPRAZOLE MAGNESIUM
  11. SPIRIVA [Concomitant]
     Active Substance: TIOTROPIUM BROMIDE MONOHYDRATE
  12. SYNTHROID [Concomitant]
     Active Substance: LEVOTHYROXINE SODIUM
  13. EPIPEN [Concomitant]
     Active Substance: EPINEPHRINE
  14. PREDNISONE. [Concomitant]
     Active Substance: PREDNISONE
  15. AZITHROMYCIN ANHYDROUS. [Concomitant]
     Active Substance: AZITHROMYCIN ANHYDROUS
  16. SODIUM CHLORIDE. [Concomitant]
     Active Substance: SODIUM CHLORIDE
  17. XOLAIR [Concomitant]
     Active Substance: OMALIZUMAB
  18. ALBUTEROL. [Concomitant]
     Active Substance: ALBUTEROL
  19. VITAMIN D [Concomitant]
     Active Substance: CHOLECALCIFEROL
  20. ZOLPIDEM [Concomitant]
     Active Substance: ZOLPIDEM\ZOLPIDEM TARTRATE
  21. COLLAGENASE SANTYL [Concomitant]
     Active Substance: COLLAGENASE CLOSTRIDIUM HISTOLYTICUM
  22. ALBUTEROL. [Concomitant]
     Active Substance: ALBUTEROL
  23. LYRICA [Concomitant]
     Active Substance: PREGABALIN
  24. NASONEX [Concomitant]
     Active Substance: MOMETASONE FUROATE
  25. METFORMIN [Concomitant]
     Active Substance: METFORMIN HYDROCHLORIDE
  26. PLAVIX [Concomitant]
     Active Substance: CLOPIDOGREL BISULFATE
  27. HIZENTRA [Suspect]
     Active Substance: HUMAN IMMUNOGLOBULIN G
     Indication: IMMUNODEFICIENCY COMMON VARIABLE
     Dosage: 10 G 50 ML VIAL
     Route: 058
  28. DIPHENHYDRAMINE. [Concomitant]
     Active Substance: DIPHENHYDRAMINE
  29. LIDOCAINE/PRILOCAINE [Concomitant]
  30. OXYCODONE [Concomitant]
     Active Substance: OXYCODONE
  31. HYDROXYZINE [Concomitant]
     Active Substance: HYDROXYZINE\HYDROXYZINE HYDROCHLORIDE
  32. FERROUS GLUCONATE [Concomitant]
     Active Substance: FERROUS GLUCONATE
  33. SINGULAIR [Concomitant]
     Active Substance: MONTELUKAST SODIUM
  34. QVAR [Concomitant]
     Active Substance: BECLOMETHASONE DIPROPIONATE
  35. GENTAMICIN. [Concomitant]
     Active Substance: GENTAMICIN
  36. XALATAN [Concomitant]
     Active Substance: LATANOPROST
  37. MUCINEX [Concomitant]
     Active Substance: GUAIFENESIN
  38. POTASSIUM CHLORIDE. [Concomitant]
     Active Substance: POTASSIUM CHLORIDE
  39. ADVAIR HFA [Concomitant]
     Active Substance: FLUTICASONE PROPIONATE\SALMETEROL XINAFOATE
  40. FLOMAX [Concomitant]
     Active Substance: TAMSULOSIN HYDROCHLORIDE
  41. CALCIUM [Concomitant]
     Active Substance: CALCIUM
  42. THEO-DUR [Concomitant]
     Active Substance: THEOPHYLLINE ANHYDROUS
  43. CETIRIZINE [Concomitant]
     Active Substance: CETIRIZINE HYDROCHLORIDE
  44. RECLAST [Concomitant]
     Active Substance: ZOLEDRONIC ACID
  45. NITROLINGUAL [Concomitant]
     Active Substance: NITROGLYCERIN
  46. ERYTHROMYCIN. [Concomitant]
     Active Substance: ERYTHROMYCIN
  47. SIMVASTATIN. [Concomitant]
     Active Substance: SIMVASTATIN

REACTIONS (1)
  - Administration site swelling [Unknown]
